FAERS Safety Report 21629416 (Version 2)
Quarter: 2023Q1

REPORT INFORMATION
  Report Type: Report from Study
  Country: US (occurrence: US)
  Receive Date: 20221122
  Receipt Date: 20230102
  Transmission Date: 20230418
  Serious: No
  Sender: FDA-Public Use
  Company Number: US-ABBVIE-22K-163-4455977-00

PATIENT
  Age: 41 Year
  Sex: Male

DRUGS (2)
  1. SKYRIZI [Suspect]
     Active Substance: RISANKIZUMAB-RZAA
     Indication: Psoriasis
     Dosage: WEEK 4;?FORM STRENGTH: 150 MG
     Route: 058
     Dates: start: 20220319
  2. SKYRIZI [Suspect]
     Active Substance: RISANKIZUMAB-RZAA
     Dosage: WEEK 0;?FORM STRENGTH: 150 MG
     Route: 058
     Dates: start: 20220319, end: 20220319

REACTIONS (5)
  - Contusion [Recovered/Resolved]
  - Acne [Recovered/Resolved]
  - Psoriasis [Unknown]
  - Pruritus [Unknown]
  - Inappropriate schedule of product administration [Unknown]

NARRATIVE: CASE EVENT DATE: 20220625
